FAERS Safety Report 18280949 (Version 4)
Quarter: 2020Q4

REPORT INFORMATION
  Report Type: Report from Study
  Country: None (occurrence: US)
  Receive Date: 20200917
  Receipt Date: 20201215
  Transmission Date: 20210113
  Serious: Yes (Other)
  Sender: FDA-Public Use
  Company Number: US-ABBVIE-20K-163-3407160-00

PATIENT
  Age: 67 Year
  Sex: Female

DRUGS (3)
  1. HUMIRA [Suspect]
     Active Substance: ADALIMUMAB
     Route: 058
     Dates: start: 2020
  2. HUMIRA [Suspect]
     Active Substance: ADALIMUMAB
     Route: 058
     Dates: start: 20200421, end: 202008
  3. HUMIRA [Suspect]
     Active Substance: ADALIMUMAB
     Indication: ANKYLOSING SPONDYLITIS
     Route: 058
     Dates: start: 201908, end: 201911

REACTIONS (36)
  - Joint range of motion decreased [Not Recovered/Not Resolved]
  - Musculoskeletal stiffness [Recovered/Resolved]
  - Asthma [Unknown]
  - Joint range of motion decreased [Recovering/Resolving]
  - Skin lesion [Not Recovered/Not Resolved]
  - Mental impairment [Unknown]
  - Ear pain [Recovered/Resolved]
  - COVID-19 [Recovered/Resolved]
  - Exposure to SARS-CoV-2 [Unknown]
  - Somnolence [Recovered/Resolved]
  - Hot flush [Unknown]
  - Unevaluable event [Unknown]
  - Peripheral swelling [Not Recovered/Not Resolved]
  - Arthralgia [Recovering/Resolving]
  - Rash papular [Not Recovered/Not Resolved]
  - Spinal fusion surgery [Unknown]
  - Pain [Recovered/Resolved]
  - Back pain [Recovering/Resolving]
  - Muscle spasms [Recovering/Resolving]
  - Pain in extremity [Recovering/Resolving]
  - Acne [Recovered/Resolved]
  - Decreased appetite [Unknown]
  - Skin discolouration [Unknown]
  - Crying [Unknown]
  - Neuropathy peripheral [Not Recovered/Not Resolved]
  - Hypersensitivity [Unknown]
  - Fatigue [Recovered/Resolved]
  - Mobility decreased [Not Recovered/Not Resolved]
  - Immunodeficiency [Unknown]
  - Emotional disorder [Unknown]
  - Swelling [Unknown]
  - Musculoskeletal stiffness [Not Recovered/Not Resolved]
  - Pruritus [Recovered/Resolved]
  - Visual impairment [Unknown]
  - Neck pain [Recovering/Resolving]
  - Pain [Recovered/Resolved]

NARRATIVE: CASE EVENT DATE: 2020
